FAERS Safety Report 25801965 (Version 6)
Quarter: 2025Q4

REPORT INFORMATION
  Report Type: Spontaneous
  Country: US (occurrence: US)
  Receive Date: 20250915
  Receipt Date: 20251228
  Transmission Date: 20260118
  Serious: Yes (Hospitalization, Other)
  Sender: SANOFI AVENTIS
  Company Number: US-SA-2025SA273859

PATIENT
  Age: 55 Year
  Sex: Male
  Weight: 63.492 kg

DRUGS (19)
  1. FABRAZYME [Suspect]
     Active Substance: AGALSIDASE BETA
     Indication: Fabry^s disease
     Dosage: 70 MG, QOW
     Route: 042
     Dates: start: 20201112
  2. MYCOPHENOLIC ACID [Concomitant]
     Active Substance: MYCOPHENOLIC ACID
     Dosage: UNK
  3. FORTEO [Concomitant]
     Active Substance: TERIPARATIDE
  4. TERIPARATIDE [Concomitant]
     Active Substance: TERIPARATIDE
     Indication: Osteoporosis
     Dosage: UNK
  5. NULOJIX [Concomitant]
     Active Substance: BELATACEPT
     Dosage: 275 MG
  6. NULOJIX [Concomitant]
     Active Substance: BELATACEPT
     Dosage: 275MG
  7. ELIQUIS [Concomitant]
     Active Substance: APIXABAN
     Dosage: 5 MG
  8. FOSAMAX [Concomitant]
     Active Substance: ALENDRONATE SODIUM
     Dosage: 70 MG
  9. DIGOX [Concomitant]
     Active Substance: DIGOXIN
     Dosage: 250 MG
  10. CATAPRES [Concomitant]
     Active Substance: CLONIDINE HYDROCHLORIDE
     Dosage: 0.2 MG 24 HRS
  11. TEGRETOL [Concomitant]
     Active Substance: CARBAMAZEPINE
     Dosage: 200 MG
  12. KLONOPIN [Concomitant]
     Active Substance: CLONAZEPAM
     Dosage: 0.5 MG
  13. ACETAMINOPHEN [Concomitant]
     Active Substance: ACETAMINOPHEN
     Indication: Premedication
     Dosage: 325 MG, PRN
  14. PREDNISONE [Concomitant]
     Active Substance: PREDNISONE
     Dosage: 5 MG
  15. NEURONTIN [Concomitant]
     Active Substance: GABAPENTIN
     Dosage: 300 MG
  16. RESTORIL [Concomitant]
     Active Substance: TEMAZEPAM
     Dosage: 30 MG
  17. SODIUM CHLORIDE [Concomitant]
     Active Substance: SODIUM CHLORIDE
  18. STERILE WATER [Concomitant]
     Active Substance: WATER
  19. SODIUM CHLORIDE [Concomitant]
     Active Substance: SODIUM CHLORIDE

REACTIONS (18)
  - Urosepsis [Unknown]
  - Angina pectoris [Unknown]
  - Ventricular tachycardia [Recovering/Resolving]
  - Cardiomyopathy [Unknown]
  - Systolic dysfunction [Unknown]
  - Diastolic dysfunction [Unknown]
  - Atrial fibrillation [Recovered/Resolved]
  - Circulatory collapse [Recovered/Resolved]
  - Shock [Recovered/Resolved]
  - Syncope [Recovered/Resolved]
  - Urinary tract infection [Unknown]
  - Bradycardia [Unknown]
  - Fall [Unknown]
  - Hypertension [Unknown]
  - Hypotension [Unknown]
  - Heart rate increased [Unknown]
  - Pyrexia [Unknown]
  - Inappropriate schedule of product administration [Unknown]

NARRATIVE: CASE EVENT DATE: 20250101
